FAERS Safety Report 25674390 (Version 1)
Quarter: 2025Q3

REPORT INFORMATION
  Report Type: Report from Study
  Country: US (occurrence: US)
  Receive Date: 20250813
  Receipt Date: 20250813
  Transmission Date: 20251021
  Serious: No
  Sender: SUNOVION
  Company Number: US-SUMITOMO PHARMA SWITZERLAND GMBH-2025SPA010246

PATIENT
  Age: 86 Year
  Sex: Male

DRUGS (17)
  1. ORGOVYX [Suspect]
     Active Substance: RELUGOLIX
     Indication: Prostate cancer
     Route: 048
  2. ORGOVYX [Suspect]
     Active Substance: RELUGOLIX
     Route: 048
  3. AMLODIPINE [Concomitant]
     Active Substance: AMLODIPINE BESYLATE
  4. ATORVASTATIN [Concomitant]
     Active Substance: ATORVASTATIN
  5. DICLOFENAC [Concomitant]
     Active Substance: DICLOFENAC
  6. HYDROCHLOROTHIAZIDE [Concomitant]
     Active Substance: HYDROCHLOROTHIAZIDE
  7. IRBESARTAN [Concomitant]
     Active Substance: IRBESARTAN
  8. METOPROLOL [Concomitant]
     Active Substance: METOPROLOL
  9. CALCIUM [Concomitant]
     Active Substance: CALCIUM
  10. VITAMINS [Concomitant]
     Active Substance: VITAMINS
  11. ALBUTEROL [Concomitant]
     Active Substance: ALBUTEROL
  12. DELSYM [Concomitant]
     Active Substance: DEXTROMETHORPHAN
  13. VITAMIN C [Concomitant]
     Active Substance: ASCORBIC ACID
  14. TYLENOL [Concomitant]
     Active Substance: ACETAMINOPHEN
  15. FLUZONE [Concomitant]
     Active Substance: INFLUENZA VIRUS VACCINE
  16. ABRYSVO [Concomitant]
     Active Substance: RECOMBINANT STABILIZED RSV A PREFUSION F ANTIGEN\RECOMBINANT STABILIZED RSV B PREFUSION F ANTIGEN
  17. Comirnaty [Concomitant]

REACTIONS (2)
  - Restless legs syndrome [Unknown]
  - Poor quality sleep [Unknown]
